FAERS Safety Report 9293360 (Version 3)
Quarter: 2013Q3

REPORT INFORMATION
  Report Type: Report from Study
  Country: CA (occurrence: CA)
  Receive Date: 20130516
  Receipt Date: 20130710
  Transmission Date: 20140515
  Serious: Yes (Other)
  Sender: FDA-Public Use
  Company Number: CA-UCBSA-085887

PATIENT
  Age: 45 Year
  Sex: Female
  Weight: 84.1 kg

DRUGS (12)
  1. CIMZIA [Suspect]
     Indication: RHEUMATOID ARTHRITIS
     Dosage: ON HOLD
     Route: 058
     Dates: start: 20110309, end: 20130413
  2. CIMZIA [Suspect]
     Indication: RHEUMATOID ARTHRITIS
     Dosage: LOADING DOSE
     Route: 058
     Dates: start: 20110126, end: 20110223
  3. ROCEPHIN [Suspect]
     Indication: CELLULITIS
     Dates: start: 2013
  4. METOJECT [Concomitant]
     Dosage: 20 MG IN 2ML
  5. METFORMINE [Concomitant]
     Dosage: DOSE- 500 MGX3
  6. LISINOPRIL [Concomitant]
     Dosage: DOSE-10 MG DAILY
  7. RALIVIA [Concomitant]
     Dosage: 300 MG DAILY
  8. MELOXICAM [Concomitant]
     Dosage: DOSE- 7.5MG X 2
  9. VYVANSE [Concomitant]
     Dosage: DOSE - 70 MG DAILY
  10. CLONAZEPAM [Concomitant]
  11. RESTASIS OP EMULSION [Concomitant]
     Dosage: DOSE- 0.5%
  12. ZENHALE [Concomitant]
     Dosage: DOSE- 100/5 MCG

REACTIONS (4)
  - Herpes zoster [Recovering/Resolving]
  - Cellulitis [Recovering/Resolving]
  - Hypersensitivity [Unknown]
  - Vasculitis [Recovering/Resolving]
